FAERS Safety Report 10071831 (Version 1)
Quarter: 2014Q2

REPORT INFORMATION
  Report Type: Spontaneous
  Country: PL (occurrence: PL)
  Receive Date: 20140411
  Receipt Date: 20140411
  Transmission Date: 20141212
  Serious: Yes (Other)
  Sender: FDA-Public Use
  Company Number: PL-JNJFOC-20140400499

PATIENT
  Age: 31 Year
  Sex: Male
  Weight: 65 kg

DRUGS (4)
  1. DOXORUBICIN HYDROCHLORIDE [Suspect]
     Indication: PRODUCT USED FOR UNKNOWN INDICATION
     Route: 042
     Dates: start: 20131025, end: 20131027
  2. IFOSFAMIDE [Suspect]
     Indication: PRODUCT USED FOR UNKNOWN INDICATION
     Dosage: 5.25
     Route: 065
     Dates: start: 20131025, end: 20131027
  3. VINCRISTINE SULFATE [Suspect]
     Indication: PRODUCT USED FOR UNKNOWN INDICATION
     Dosage: 2
     Route: 065
     Dates: start: 20131025, end: 20131025
  4. ETOPOSID [Suspect]
     Indication: PRODUCT USED FOR UNKNOWN INDICATION
     Dosage: 262.5
     Route: 065
     Dates: start: 20131025

REACTIONS (3)
  - White blood cell disorder [Recovered/Resolved]
  - Granulocytes abnormal [Recovered/Resolved]
  - Platelet disorder [Recovered/Resolved]
